FAERS Safety Report 19832288 (Version 1)
Quarter: 2021Q3

REPORT INFORMATION
  Report Type: Spontaneous
  Country: JP (occurrence: JP)
  Receive Date: 20210915
  Receipt Date: 20210915
  Transmission Date: 20211014
  Serious: Yes (Death, Life-Threatening, Hospitalization, Other)
  Sender: FDA-Public Use
  Company Number: NVSJ2021JP013750

PATIENT
  Age: 35 Year
  Sex: Female

DRUGS (3)
  1. HALOPERIDOL. [Suspect]
     Active Substance: HALOPERIDOL
     Indication: PRODUCT USED FOR UNKNOWN INDICATION
     Dosage: UNK
     Route: 065
  2. LITHIUM CARBONATE. [Suspect]
     Active Substance: LITHIUM CARBONATE
     Indication: PRODUCT USED FOR UNKNOWN INDICATION
     Dosage: UNK
     Route: 048
  3. TEGRETOL XR [Suspect]
     Active Substance: CARBAMAZEPINE
     Indication: PRODUCT USED FOR UNKNOWN INDICATION
     Dosage: UNK
     Route: 048

REACTIONS (11)
  - Hepatic enzyme increased [Unknown]
  - Abdominal compartment syndrome [Fatal]
  - Suicidal ideation [Unknown]
  - Toxicity to various agents [Not Recovered/Not Resolved]
  - Urine output decreased [Unknown]
  - Ileus paralytic [Unknown]
  - Intestinal ischaemia [Not Recovered/Not Resolved]
  - Vomiting [Unknown]
  - Faeces discoloured [Unknown]
  - Altered state of consciousness [Fatal]
  - Intentional overdose [Unknown]
